FAERS Safety Report 10645680 (Version 1)
Quarter: 2014Q4

REPORT INFORMATION
  Report Type: Spontaneous
  Country: US (occurrence: None)
  Receive Date: 20141210
  Receipt Date: 20141210
  Transmission Date: 20150529
  Serious: No
  Sender: FDA-Public Use
  Company Number: None

PATIENT
  Age: 13 Year
  Sex: Female
  Weight: 49.9 kg

DRUGS (1)
  1. METHYLPHENIDATE ER [Suspect]
     Active Substance: METHYLPHENIDATE
     Indication: ATTENTION DEFICIT/HYPERACTIVITY DISORDER
     Dosage: 1 PILL
     Route: 048

REACTIONS (6)
  - Drug ineffective [None]
  - Disturbance in attention [None]
  - Aggression [None]
  - Impulsive behaviour [None]
  - Emotional disorder [None]
  - Educational problem [None]

NARRATIVE: CASE EVENT DATE: 20141203
